FAERS Safety Report 9458321 (Version 1)
Quarter: 2013Q3

REPORT INFORMATION
  Report Type: Spontaneous
  Country: US (occurrence: US)
  Receive Date: 20130814
  Receipt Date: 20130814
  Transmission Date: 20140515
  Serious: No
  Sender: FDA-Public Use
  Company Number: US-BAYER-2013-095353

PATIENT
  Age: 64 Year
  Sex: Female

DRUGS (6)
  1. FINACEA [Suspect]
     Indication: ROSACEA
     Dosage: UNK UNK, BID
     Route: 061
     Dates: start: 20130630
  2. CLONAZEPAM [Concomitant]
     Indication: SLEEP DISORDER
     Dosage: 0.1 MG, PRN
     Route: 048
  3. OMEPRAZOLE [Concomitant]
     Dosage: 20 MG, QD
     Route: 048
  4. PROVENTIL [Concomitant]
     Indication: ASTHMA
     Route: 049
  5. DOXYCYCLINE [Concomitant]
     Indication: ROSACEA
     Dosage: 40 MG, UNK
     Route: 048
     Dates: start: 20130630, end: 20130703
  6. DOXYCYCLINE [Concomitant]
     Indication: RASH PAPULAR

REACTIONS (1)
  - Oral herpes [Not Recovered/Not Resolved]
